FAERS Safety Report 9718948 (Version 1)
Quarter: 2013Q4

REPORT INFORMATION
  Report Type: Spontaneous
  Country: US (occurrence: None)
  Receive Date: 20131125
  Receipt Date: 20131125
  Transmission Date: 20140711
  Serious: Yes (Death, Hospitalization)
  Sender: FDA-Public Use
  Company Number: 2013P1021126

PATIENT
  Age: 29 Year
  Sex: Female

DRUGS (5)
  1. ESCITALOPRAM [Suspect]
     Dosage: ; X1;
  2. BUPROPION [Suspect]
     Dosage: ; X1 ;
  3. QUETIAPINE [Suspect]
     Dosage: ; X1 ;
  4. DESVENLAFAXINE [Suspect]
     Dosage: ; X1 ;
  5. IBUPROFEN [Suspect]
     Dosage: ; X 1 ;

REACTIONS (6)
  - Pulseless electrical activity [None]
  - Sinus tachycardia [None]
  - Brain injury [None]
  - Circulatory collapse [None]
  - Cardiac arrest [None]
  - Overdose [None]
